FAERS Safety Report 20515637 (Version 1)
Quarter: 2022Q1

REPORT INFORMATION
  Report Type: Spontaneous
  Country: CN (occurrence: CN)
  Receive Date: 20220224
  Receipt Date: 20220224
  Transmission Date: 20220423
  Serious: Yes (Hospitalization, Other)
  Sender: FDA-Public Use
  Company Number: CN-BAXTER-2022BAX003847

PATIENT
  Age: 65 Year
  Sex: Female
  Weight: 54 kg

DRUGS (4)
  1. CYCLOPHOSPHAMIDE [Suspect]
     Active Substance: CYCLOPHOSPHAMIDE
     Indication: Breast cancer
     Dosage: 0.9% SODIUM CHLORIDE INJECTION 250ML + CYCLOPHOSPHAMIDE INJECTION 0.8G
     Route: 041
     Dates: start: 20220118, end: 20220118
  2. DEXTROSE [Suspect]
     Active Substance: DEXTROSE
     Indication: Medication dilution
     Dosage: 5% GLUCOSE INJECTION 250ML + DOXORUBICIN HYDROCHLORIDE LIPOSOME INJECTION 50MG
     Route: 041
     Dates: start: 20220118, end: 20220118
  3. SODIUM CHLORIDE [Suspect]
     Active Substance: SODIUM CHLORIDE
     Indication: Medication dilution
     Dosage: 0.9% SODIUM CHLORIDE INJECTION 250ML + CYCLOPHOSPHAMIDE INJECTION 0.8G
     Route: 041
     Dates: start: 20220118, end: 20220118
  4. DOXORUBICIN HYDROCHLORIDE [Suspect]
     Active Substance: DOXORUBICIN HYDROCHLORIDE
     Indication: Breast cancer
     Dosage: 5% GLUCOSE INJECTION 250ML + DOXORUBICIN HYDROCHLORIDE LIPOSOME INJECTION 50MG
     Route: 041
     Dates: start: 20220118, end: 20220118

REACTIONS (1)
  - Deafness neurosensory [Unknown]

NARRATIVE: CASE EVENT DATE: 20220130
